FAERS Safety Report 20161921 (Version 1)
Quarter: 2021Q4

REPORT INFORMATION
  Report Type: Spontaneous
  Country: US (occurrence: None)
  Receive Date: 20211208
  Receipt Date: 20211208
  Transmission Date: 20220304
  Serious: No
  Sender: FDA-Public Use
  Company Number: None

PATIENT
  Sex: Male
  Weight: 71.2 kg

DRUGS (2)
  1. BENDAMUSTINE HYDROCHLORIDE [Suspect]
     Active Substance: BENDAMUSTINE HYDROCHLORIDE
  2. RITUXIMAB (MOAB C2b8 AMTO CD20, CHIMERIC) [Concomitant]

REACTIONS (5)
  - Neutropenia [None]
  - Therapy interrupted [None]
  - Upper respiratory tract infection [None]
  - Conjunctivitis [None]
  - Acute myeloid leukaemia [None]

NARRATIVE: CASE EVENT DATE: 20190320
